FAERS Safety Report 20726905 (Version 1)
Quarter: 2022Q2

REPORT INFORMATION
  Report Type: Spontaneous
  Country: US (occurrence: US)
  Receive Date: 20220419
  Receipt Date: 20220419
  Transmission Date: 20220721
  Serious: No
  Sender: FDA-Public Use
  Company Number: US-PFIZER INC-202101146755

PATIENT
  Sex: Female
  Weight: 56.7 kg

DRUGS (2)
  1. AMLODIPINE BESYLATE [Suspect]
     Active Substance: AMLODIPINE BESYLATE
     Indication: Hypertension
     Dosage: 10 MG, 1X/DAY (10MG, ONCE A DAY IN THE MORNING)
     Route: 048
  2. CRESTOR [Concomitant]
     Active Substance: ROSUVASTATIN CALCIUM
     Indication: Blood cholesterol
     Dosage: 5 MG, 1X/DAY (5MG, ONCE A DAY IN THE MORNING ORALLY)
     Route: 048

REACTIONS (1)
  - Gingival swelling [Unknown]
